FAERS Safety Report 7456586-6 (Version None)
Quarter: 2011Q2

REPORT INFORMATION
  Report Type: 
  Country: None (occurrence: None)
  Receive Date: 20110503
  Receipt Date: 20110428
  Transmission Date: 20111010
  Serious: Yes (Hospitalization, Other)
  Sender: FDA-Public Use
  Company Number: US-PFIZER INC-2011086201

PATIENT
  Sex: Male
  Weight: 76.2 kg

DRUGS (1)
  1. SUTENT [Suspect]
     Indication: RENAL CANCER
     Dosage: 5 MG, 1X/DAY
     Route: 048
     Dates: start: 20110201, end: 20110201

REACTIONS (8)
  - DEPRESSED MOOD [None]
  - MALAISE [None]
  - SYNCOPE [None]
  - LIVER FUNCTION TEST ABNORMAL [None]
  - HAEMATEMESIS [None]
  - FEELING ABNORMAL [None]
  - LOSS OF CONSCIOUSNESS [None]
  - LIVER DISORDER [None]
